FAERS Safety Report 21183393 (Version 1)
Quarter: 2022Q3

REPORT INFORMATION
  Report Type: Spontaneous
  Country: BR (occurrence: BR)
  Receive Date: 20220808
  Receipt Date: 20220808
  Transmission Date: 20221026
  Serious: Yes (Other)
  Sender: FDA-Public Use
  Company Number: BR-ALVOGEN-2022-ALVOGEN-120702

PATIENT
  Age: 18 Month
  Sex: Female

DRUGS (5)
  1. MELPHALAN [Suspect]
     Active Substance: MELPHALAN
     Indication: Retinoblastoma
     Route: 013
  2. VINCRISTINE [Concomitant]
     Active Substance: VINCRISTINE
     Indication: Retinoblastoma
     Dosage: SIX MONTHLY CYCLES OF INTRAVENOUS CHEMOTHERAPY OF VINCRISTINE, ETOPOSIDE, AND CARBOPLATIN
     Route: 042
  3. ETOPOSIDE [Concomitant]
     Active Substance: ETOPOSIDE
     Indication: Retinoblastoma
     Dosage: SIX MONTHLY CYCLES OF INTRAVENOUS CHEMOTHERAPY OF VINCRISTINE, ETOPOSIDE, AND CARBOPLATIN
     Route: 042
  4. CARBOPLATIN [Concomitant]
     Active Substance: CARBOPLATIN
     Indication: Retinoblastoma
     Dosage: SIX MONTHLY CYCLES OF INTRAVENOUS CHEMOTHERAPY OF VINCRISTINE, ETOPOSIDE, AND CARBOPLATIN
     Route: 042
  5. TOPOTECAN [Concomitant]
     Active Substance: TOPOTECAN HYDROCHLORIDE
     Indication: Retinoblastoma

REACTIONS (2)
  - Retinopathy [Unknown]
  - Therapy partial responder [Unknown]
